FAERS Safety Report 5471174-9 (Version None)
Quarter: 2007Q3

REPORT INFORMATION
  Report Type: 
  Country: None (occurrence: None)
  Receive Date: 20070928
  Receipt Date: 20070926
  Transmission Date: 20080115
  Serious: Yes (Death, Hospitalization)
  Sender: FDA-Public Use
  Company Number: FR-ABBOTT-07P-056-0418479-00

PATIENT
  Sex: Female
  Weight: 37 kg

DRUGS (5)
  1. HUMIRA [Suspect]
     Indication: RHEUMATOID ARTHRITIS
     Route: 058
     Dates: start: 20040420, end: 20070701
  2. COMMERCIAL HUMIRA [Concomitant]
     Indication: RHEUMATOID ARTHRITIS
     Route: 058
     Dates: start: 20031101
  3. METHYLPREDNISOLONE SODIUM SUCCINATE [Concomitant]
     Indication: RESPIRATORY TRACT INFECTION
     Dates: start: 20070701, end: 20070729
  4. ESOMEPRAZOLE MAGNESIUM [Concomitant]
     Indication: PROPHYLAXIS AGAINST GASTROINTESTINAL ULCER
     Dates: start: 20070701, end: 20070729
  5. NICARDIPINE HCL [Concomitant]
     Indication: HYPERTENSION
     Dates: start: 20070701, end: 20070729

REACTIONS (2)
  - ABNORMAL BEHAVIOUR [None]
  - RESPIRATORY FAILURE [None]
